FAERS Safety Report 9962561 (Version 1)
Quarter: 2014Q1

REPORT INFORMATION
  Report Type: Report from Study
  Country: US (occurrence: US)
  Receive Date: 20140305
  Receipt Date: 20140305
  Transmission Date: 20141002
  Serious: No
  Sender: FDA-Public Use
  Company Number: US-ABBVIE-13P-163-1115513-00

PATIENT
  Sex: Female

DRUGS (11)
  1. HUMIRA [Suspect]
     Indication: PSORIASIS
     Dates: start: 20130506
  2. SYMBICORT [Concomitant]
     Indication: RESPIRATORY DISORDER
  3. SPIRIVA [Concomitant]
     Indication: RESPIRATORY DISORDER
     Dosage: DAILY
  4. ALEVE [Concomitant]
     Indication: ARTHRALGIA
     Dosage: EVERY MORNING
  5. GENERIC BLOOD PRESSURE PILL [Concomitant]
     Indication: PRODUCT USED FOR UNKNOWN INDICATION
  6. UNKNOWN MEDICATION [Concomitant]
     Indication: THYROID FUNCTION TEST ABNORMAL
     Dosage: PILLS
  7. APPETITE SUPPRESSANT [Concomitant]
     Indication: PRODUCT USED FOR UNKNOWN INDICATION
  8. MELATONIN [Concomitant]
     Indication: INSOMNIA
     Dosage: AT BEDTIME
  9. METFORMIN [Concomitant]
     Indication: BLOOD GLUCOSE INCREASED
     Dosage: AT BEDTIME
  10. GENERIC XANAX [Concomitant]
     Indication: INSOMNIA
     Dosage: AT BEDTIME
  11. GENERIC ANTIDEPRESSANT [Concomitant]
     Indication: PRODUCT USED FOR UNKNOWN INDICATION

REACTIONS (3)
  - Urethral pain [Not Recovered/Not Resolved]
  - Blood urine [Not Recovered/Not Resolved]
  - Urinary tract infection [Not Recovered/Not Resolved]
